FAERS Safety Report 5808889-6 (Version None)
Quarter: 2008Q3

REPORT INFORMATION
  Report Type: 
  Country: None (occurrence: None)
  Receive Date: 20080714
  Receipt Date: 20080625
  Transmission Date: 20090109
  Serious: Yes (Other)
  Sender: FDA-Public Use
  Company Number: MY-MERCK-0806MYS00018

PATIENT
  Age: 31 Year
  Sex: Male
  Weight: 50 kg

DRUGS (5)
  1. PRIMAXIN [Suspect]
     Indication: ESCHERICHIA URINARY TRACT INFECTION
     Route: 041
     Dates: start: 20080613, end: 20080617
  2. STOCRIN [Concomitant]
     Indication: HIV INFECTION
     Route: 048
  3. STAVUDINE [Concomitant]
     Indication: HIV INFECTION
     Route: 048
  4. LAMIVUDINE [Concomitant]
     Indication: HIV INFECTION
     Route: 048
  5. MERONEM [Concomitant]
     Route: 065
     Dates: start: 20080601

REACTIONS (1)
  - FEBRILE CONVULSION [None]
